FAERS Safety Report 23443472 (Version 1)
Quarter: 2024Q1

REPORT INFORMATION
  Report Type: Spontaneous
  Country: FR (occurrence: FR)
  Receive Date: 20240125
  Receipt Date: 20240125
  Transmission Date: 20240409
  Serious: Yes (Life-Threatening)
  Sender: FDA-Public Use
  Company Number: None

PATIENT
  Age: 81 Year
  Sex: Male
  Weight: 86 kg

DRUGS (7)
  1. PREDNISONE [Interacting]
     Active Substance: PREDNISONE
     Indication: Prostate cancer
     Dosage: 10 MILLIGRAM, QD
     Route: 048
  2. KETOPROFEN [Interacting]
     Active Substance: KETOPROFEN
     Indication: Renal colic
     Dosage: 200 MILLIGRAM, QD
     Route: 048
     Dates: start: 20231213, end: 20231214
  3. ENANTONE LP [Concomitant]
     Active Substance: LEUPROLIDE ACETATE
     Dosage: 1 DOSAGE FORM, Q3MONTHS
     Route: 042
  4. RABEPRAZOLE [Concomitant]
     Active Substance: RABEPRAZOLE
     Dosage: 1 DOSAGE FORM, 1 AS NECESSARY
     Route: 048
  5. COVERAM [Concomitant]
     Active Substance: AMLODIPINE\PERINDOPRIL
     Dosage: 1 DOSAGE FORM, QD
     Route: 048
     Dates: end: 20231215
  6. ABIRATERONE ACETATE [Concomitant]
     Active Substance: ABIRATERONE ACETATE
     Dosage: 1 GRAM, QD
     Route: 048
     Dates: end: 20231215
  7. BISOPROLOL FUMARATE [Concomitant]
     Active Substance: BISOPROLOL FUMARATE
     Dosage: 2.5 MILLIGRAM, QD
     Route: 048
     Dates: end: 20231215

REACTIONS (2)
  - Drug interaction [Recovered/Resolved]
  - Septic shock [Recovered/Resolved]

NARRATIVE: CASE EVENT DATE: 20231215
